FAERS Safety Report 8585372-9 (Version None)
Quarter: 2012Q3

REPORT INFORMATION
  Report Type: 
  Country: None (occurrence: None)
  Receive Date: 20120810
  Receipt Date: 20120802
  Transmission Date: 20120928
  Serious: Yes (Hospitalization, Other)
  Sender: FDA-Public Use
  Company Number: US-ASTELLAS-2012US005502

PATIENT
  Sex: Male

DRUGS (26)
  1. TARCEVA [Suspect]
     Dosage: 100 MG, QOD
     Route: 048
     Dates: start: 20120620
  2. FUROSEMIDE [Concomitant]
     Indication: FLUID RETENTION
     Dosage: 20 MG, UID/QD, PRN
     Route: 065
  3. PRAVASTATIN [Concomitant]
     Indication: BLOOD CHOLESTEROL INCREASED
     Dosage: 80 MG, QHS
     Route: 065
  4. CARVEDILOL [Concomitant]
     Indication: CARDIAC FAILURE CONGESTIVE
     Dosage: 3.125 MG, BID
     Route: 065
  5. FISH OIL [Concomitant]
     Indication: PRODUCT USED FOR UNKNOWN INDICATION
     Dosage: 1000 MG, UID/QD
     Route: 065
  6. ALBUTEROL [Concomitant]
     Indication: PRODUCT USED FOR UNKNOWN INDICATION
     Dosage: 180 UG, QID, PRN
     Route: 048
  7. NITROGLYCERIN [Concomitant]
     Indication: PRODUCT USED FOR UNKNOWN INDICATION
     Dosage: 0.4 MG, UNKNOWN/D
     Route: 065
  8. MAGIC MOUTHWASH [Concomitant]
     Indication: PRODUCT USED FOR UNKNOWN INDICATION
     Dosage: 15 ML, PRN, BEFORE MEALS AND AT BED
     Route: 065
  9. POTASSIUM [Concomitant]
     Indication: MINERAL SUPPLEMENTATION
     Dosage: 20 MEQ, BID
     Route: 065
  10. LISINOPRIL [Concomitant]
     Indication: HYPERTENSION
     Dosage: 2.5 MG, UID/QD
     Route: 065
  11. AMIODARONE HCL [Concomitant]
     Indication: HEART RATE
     Dosage: 200 MG, Q12 HOURS
     Route: 065
  12. DICYCLOMINE [Concomitant]
     Indication: ABDOMINAL PAIN
     Dosage: 10 MG, TID
     Route: 065
  13. TARCEVA [Suspect]
     Dosage: 100 MG, UID/QD
     Route: 048
     Dates: start: 20120601, end: 20120608
  14. ASPIRIN [Concomitant]
     Indication: CARDIAC DISORDER
     Dosage: 81 MG, UID/QD
     Route: 065
  15. HYDROCODONE HYDROCHLORIDE W/PARACETAMOL [Concomitant]
     Indication: PAIN
     Dosage: UNK, 1-2 TABLETS Q6HRS PRN
     Route: 065
  16. DIPHENOXYLATE HCL AND ATROPINE SULFATE [Concomitant]
     Indication: DIARRHOEA
     Dosage: UNK, 2.5-.025, NOW THEN LATER EACH BM
     Route: 065
  17. SPIRONOLACTONE [Concomitant]
     Indication: CARDIAC DISORDER
  18. ONDANSETRON [Concomitant]
     Indication: NAUSEA
     Dosage: 8 MG, PRN, Q6 HRS
     Route: 065
  19. PROMETHAZINE HYDROCHLORIDE [Concomitant]
     Indication: PRODUCT USED FOR UNKNOWN INDICATION
     Dosage: 25 MG, PRN, Q 4HRS
     Route: 065
  20. DICYCLOMINE [Concomitant]
     Indication: ABDOMINAL RIGIDITY
  21. BENZONATATE [Concomitant]
     Indication: COUGH
     Dosage: 100 MG, BID, PRN
     Route: 065
  22. TARCEVA [Suspect]
     Indication: LUNG NEOPLASM MALIGNANT
     Dosage: 150 MG, UID/QD
     Route: 048
     Dates: start: 20120408, end: 20120424
  23. SPIRONOLACTONE [Concomitant]
     Indication: BLOOD PRESSURE
     Dosage: 12.5 MG, UID/QD
     Route: 065
  24. PAROXETINE [Concomitant]
     Indication: MOOD ALTERED
     Dosage: 10 MG, UID/QD
     Route: 065
  25. ONDANSETRON [Concomitant]
     Indication: VOMITING
  26. SORBITOL 50PC INJ [Concomitant]
     Indication: CONSTIPATION
     Dosage: 30 ML, Q6 HOURS, PRN
     Route: 065

REACTIONS (6)
  - DYSPNOEA [None]
  - FATIGUE [None]
  - ANGINA PECTORIS [None]
  - BRONCHOSPASM [None]
  - PNEUMONIA [None]
  - DIARRHOEA [None]
